FAERS Safety Report 15579174 (Version 1)
Quarter: 2018Q4

REPORT INFORMATION
  Report Type: Spontaneous
  Country: US (occurrence: US)
  Receive Date: 20181102
  Receipt Date: 20181102
  Transmission Date: 20190205
  Serious: No
  Sender: FDA-Public Use
  Company Number: US-SA-2018SA300504

PATIENT
  Age: 72 Year
  Sex: Male
  Weight: 106.14 kg

DRUGS (2)
  1. KEVZARA [Suspect]
     Active Substance: SARILUMAB
     Indication: ARTHRITIS
     Dosage: 200MG/1.14 ML (175.4 MG/ML)
     Route: 058
     Dates: start: 20180806
  2. KEVZARA [Suspect]
     Active Substance: SARILUMAB
     Indication: SYSTEMIC LUPUS ERYTHEMATOSUS

REACTIONS (2)
  - Product use in unapproved indication [Unknown]
  - Fatigue [Recovered/Resolved]

NARRATIVE: CASE EVENT DATE: 20180806
